FAERS Safety Report 21622010 (Version 1)
Quarter: 2022Q4

REPORT INFORMATION
  Report Type: Spontaneous
  Country: US (occurrence: None)
  Receive Date: 20221120
  Receipt Date: 20221120
  Transmission Date: 20230112
  Serious: No
  Sender: FDA-Public Use
  Company Number: None

PATIENT
  Age: 5 Year
  Sex: Female
  Weight: 22.5 kg

DRUGS (7)
  1. DELSYM [Suspect]
     Active Substance: DEXTROMETHORPHAN
     Indication: Cough
     Dosage: OTHER QUANTITY : 1 TEASPOON(S);?FREQUENCY : EVERY 12 HOURS;?
     Route: 048
     Dates: start: 20221119, end: 20221120
  2. CETIRIZINE [Concomitant]
  3. SINGULAIR [Concomitant]
  4. DULERA [Concomitant]
     Active Substance: FORMOTEROL FUMARATE DIHYDRATE\MOMETASONE FUROATE
  5. ALBUTEROL [Concomitant]
     Active Substance: ALBUTEROL
  6. TYLENOL [Concomitant]
  7. MOTRIN [Concomitant]
     Active Substance: IBUPROFEN

REACTIONS (5)
  - Anxiety [None]
  - Hallucination, auditory [None]
  - Hallucination, visual [None]
  - Fear [None]
  - Insomnia [None]

NARRATIVE: CASE EVENT DATE: 20221119
